FAERS Safety Report 18833785 (Version 6)
Quarter: 2022Q1

REPORT INFORMATION
  Report Type: Spontaneous
  Country: CA (occurrence: CA)
  Receive Date: 20210203
  Receipt Date: 20220224
  Transmission Date: 20220423
  Serious: Yes (Other)
  Sender: FDA-Public Use
  Company Number: CA-BAYER-2021-042054

PATIENT

DRUGS (14)
  1. EYLEA [Suspect]
     Active Substance: AFLIBERCEPT
     Indication: Neovascular age-related macular degeneration
     Dosage: UNK
     Dates: start: 20200204, end: 20200204
  2. EYLEA [Suspect]
     Active Substance: AFLIBERCEPT
     Dosage: UNK
     Dates: start: 20200303, end: 20200303
  3. EYLEA [Suspect]
     Active Substance: AFLIBERCEPT
     Dosage: UNK
     Dates: start: 20200331, end: 20200331
  4. EYLEA [Suspect]
     Active Substance: AFLIBERCEPT
     Dosage: UNK
     Dates: start: 20200512, end: 20200512
  5. EYLEA [Suspect]
     Active Substance: AFLIBERCEPT
     Dosage: UNK
     Dates: start: 20200623, end: 20200623
  6. EYLEA [Suspect]
     Active Substance: AFLIBERCEPT
     Dosage: UNK
     Dates: start: 20200630, end: 20200630
  7. EYLEA [Suspect]
     Active Substance: AFLIBERCEPT
     Dosage: UNK
     Dates: start: 20200826, end: 20200826
  8. POVIDONE-IODINE [Suspect]
     Active Substance: POVIDONE-IODINE
     Indication: Product used for unknown indication
     Dosage: UNK
     Route: 047
     Dates: start: 20200204, end: 20200204
  9. POVIDONE-IODINE [Suspect]
     Active Substance: POVIDONE-IODINE
     Dosage: UNK
     Route: 047
     Dates: start: 20200303, end: 20200303
  10. POVIDONE-IODINE [Suspect]
     Active Substance: POVIDONE-IODINE
     Dosage: UNK
     Route: 047
     Dates: start: 20200331, end: 20200331
  11. POVIDONE-IODINE [Suspect]
     Active Substance: POVIDONE-IODINE
     Dosage: UNK
     Route: 047
     Dates: start: 20200512, end: 20200512
  12. POVIDONE-IODINE [Suspect]
     Active Substance: POVIDONE-IODINE
     Dosage: UNK
     Route: 047
     Dates: start: 20200623, end: 20200623
  13. POVIDONE-IODINE [Suspect]
     Active Substance: POVIDONE-IODINE
     Dosage: UNK
     Route: 047
     Dates: start: 20200630, end: 20200630
  14. POVIDONE-IODINE [Suspect]
     Active Substance: POVIDONE-IODINE
     Dosage: UNK
     Route: 047
     Dates: start: 20200826, end: 20200826

REACTIONS (10)
  - Conjunctivitis [Recovered/Resolved]
  - Drug hypersensitivity [Not Recovered/Not Resolved]
  - Product dose omission issue [Unknown]
  - Off label use [Unknown]
  - Periorbital discomfort [Recovered/Resolved]
  - Headache [Recovered/Resolved]
  - Nausea [Recovered/Resolved]
  - Eye pain [Not Recovered/Not Resolved]
  - Eye irritation [Unknown]
  - Eye irritation [Recovering/Resolving]

NARRATIVE: CASE EVENT DATE: 20200204
